FAERS Safety Report 7549426-8 (Version None)
Quarter: 2011Q2

REPORT INFORMATION
  Report Type: 
  Country: None (occurrence: None)
  Receive Date: 20110615
  Receipt Date: 20040726
  Transmission Date: 20111010
  Serious: Yes (Other)
  Sender: FDA-Public Use
  Company Number: PHFR2003GB03569

PATIENT
  Sex: Female

DRUGS (1)
  1. CLOZAPINE [Suspect]
     Route: 048
     Dates: start: 20030313

REACTIONS (3)
  - CONNECTIVE TISSUE INFLAMMATION [None]
  - WHITE BLOOD CELL COUNT INCREASED [None]
  - SYSTEMIC LUPUS ERYTHEMATOSUS [None]
